FAERS Safety Report 10223805 (Version 2)
Quarter: 2014Q2

REPORT INFORMATION
  Report Type: Spontaneous
  Country: PL (occurrence: None)
  Receive Date: 20140605
  Receipt Date: 20140605
  Transmission Date: 20141212
  Serious: Yes (Congenital Anomaly)
  Sender: FDA-Public Use
  Company Number: 2014P1004519

PATIENT
  Age: 22 Month
  Sex: Female

DRUGS (1)
  1. ALBENDAZOLE TABLETS [Suspect]
     Route: 064

REACTIONS (4)
  - Developmental delay [None]
  - Maternal drugs affecting foetus [None]
  - Inability to crawl [None]
  - Cytogenetic abnormality [None]
